FAERS Safety Report 4380533-7 (Version None)
Quarter: 2004Q2

REPORT INFORMATION
  Report Type: 
  Country: None (occurrence: None)
  Receive Date: 20040614
  Receipt Date: 20040316
  Transmission Date: 20050107
  Serious: Yes (Hospitalization)
  Sender: FDA-Public Use
  Company Number: M04-341-084

PATIENT
  Age: 80 Year
  Sex: Female

DRUGS (5)
  1. VELCADE [Suspect]
     Indication: MULTIPLE MYELOMA
     Dosage: 1.3 MG/M2 : INTRAVENOUS BOLUS
     Route: 040
  2. LOPERAMIDE HCL [Concomitant]
  3. MULTIVITAMINS, PLAIN [Concomitant]
  4. VITAMIN C (ASCORBIC ACID); [Concomitant]
  5. VITAMIN E [Concomitant]

REACTIONS (1)
  - HYPONATRAEMIA [None]
